FAERS Safety Report 16223883 (Version 2)
Quarter: 2019Q2

REPORT INFORMATION
  Report Type: Report from Study
  Country: ES (occurrence: ES)
  Receive Date: 20190422
  Receipt Date: 20190422
  Transmission Date: 20190711
  Serious: Yes (Hospitalization)
  Sender: FDA-Public Use
  Company Number: ES-PFIZER INC-2019165180

PATIENT
  Age: 70 Year
  Sex: Male
  Weight: 68 kg

DRUGS (11)
  1. AVELUMAB [Suspect]
     Active Substance: AVELUMAB
     Indication: NON-SMALL CELL LUNG CANCER
     Dosage: 800 MG, UNK
     Route: 042
     Dates: start: 20190305
  2. CISPLATIN. [Suspect]
     Active Substance: CISPLATIN
     Indication: NON-SMALL CELL LUNG CANCER
     Dosage: 132.75 MG, UNK
     Route: 042
     Dates: start: 20190305
  3. GEMCITABINE HYDROCHLORIDE. [Suspect]
     Active Substance: GEMCITABINE HYDROCHLORIDE
     Indication: NON-SMALL CELL LUNG CANCER
     Dosage: 2212.5 MG, UNK
     Route: 042
     Dates: start: 20190305
  4. CETUXIMAB. [Suspect]
     Active Substance: CETUXIMAB
     Dosage: 442.5 MG, UNK
     Route: 042
  5. CETUXIMAB. [Suspect]
     Active Substance: CETUXIMAB
     Dosage: UNK
  6. CETUXIMAB. [Suspect]
     Active Substance: CETUXIMAB
     Dosage: 442.5 MG, UNK
     Route: 042
  7. AVELUMAB [Suspect]
     Active Substance: AVELUMAB
     Dosage: 800 MG, UNK
     Route: 042
  8. AVELUMAB [Suspect]
     Active Substance: AVELUMAB
     Dosage: 800 MG, UNK
     Route: 042
  9. CETUXIMAB. [Suspect]
     Active Substance: CETUXIMAB
     Dosage: 442.5 MG, UNK
     Route: 042
  10. AVELUMAB [Suspect]
     Active Substance: AVELUMAB
     Dosage: 800 MG, UNK
     Route: 042
  11. CETUXIMAB. [Suspect]
     Active Substance: CETUXIMAB
     Indication: NON-SMALL CELL LUNG CANCER
     Dosage: 442.5 MG, UNK
     Route: 042
     Dates: start: 20190305

REACTIONS (1)
  - Lower respiratory tract infection [Recovered/Resolved]

NARRATIVE: CASE EVENT DATE: 20190402
